FAERS Safety Report 8960388 (Version 2)
Quarter: 2013Q4

REPORT INFORMATION
  Report Type: Spontaneous
  Country: US (occurrence: US)
  Receive Date: 20121211
  Receipt Date: 20131127
  Transmission Date: 20140711
  Serious: Yes (Death, Other)
  Sender: FDA-Public Use
  Company Number: CHPA2012US025094

PATIENT
  Sex: Male

DRUGS (1)
  1. MAALOX UNKNOWN [Suspect]
     Dosage: UNK, UNK
     Route: 048

REACTIONS (2)
  - Death [Fatal]
  - T-cell lymphoma [Unknown]
